FAERS Safety Report 15486350 (Version 2)
Quarter: 2018Q4

REPORT INFORMATION
  Report Type: Spontaneous
  Country: FR (occurrence: FR)
  Receive Date: 20181011
  Receipt Date: 20181026
  Transmission Date: 20190205
  Serious: Yes (Other)
  Sender: FDA-Public Use
  Company Number: FR-AMGEN-FRASP2018139465

PATIENT
  Age: 52 Year
  Sex: Male
  Weight: 67 kg

DRUGS (6)
  1. FUROSEMIDE BIOGARAN [Suspect]
     Active Substance: FUROSEMIDE
     Indication: PRODUCT USED FOR UNKNOWN INDICATION
     Dosage: 20 MG, QD
     Route: 048
     Dates: start: 201802
  2. SKENAN [Suspect]
     Active Substance: MORPHINE SULFATE
     Indication: BONE PAIN
     Dosage: 20 MG, QD
     Route: 048
     Dates: start: 201706
  3. LOVENOX [Concomitant]
     Active Substance: ENOXAPARIN SODIUM
     Indication: PRODUCT USED FOR UNKNOWN INDICATION
     Dosage: UNK
     Route: 058
  4. XGEVA [Suspect]
     Active Substance: DENOSUMAB
     Indication: METASTASES TO BONE
     Dosage: 120 MG, QMO
     Route: 058
     Dates: start: 201711
  5. ZOPICLONE [Concomitant]
     Active Substance: ZOPICLONE
     Indication: PRODUCT USED FOR UNKNOWN INDICATION
     Dosage: UNK
     Route: 048
  6. PAROXETINE. [Suspect]
     Active Substance: PAROXETINE
     Indication: DEPRESSION
     Dosage: 20 MG, QD
     Route: 048
     Dates: start: 201802

REACTIONS (2)
  - Retinal oedema [Not Recovered/Not Resolved]
  - Keratitis [Not Recovered/Not Resolved]

NARRATIVE: CASE EVENT DATE: 201803
